FAERS Safety Report 8851081 (Version 3)
Quarter: 2013Q2

REPORT INFORMATION
  Report Type: Spontaneous
  Country: US (occurrence: US)
  Receive Date: 20121019
  Receipt Date: 20130619
  Transmission Date: 20140414
  Serious: Yes (Other)
  Sender: FDA-Public Use
  Company Number: US-PFIZER INC-2012258794

PATIENT
  Age: 89 Year
  Sex: Female
  Weight: 54.88 kg

DRUGS (11)
  1. SUTENT [Suspect]
     Indication: METASTATIC RENAL CELL CARCINOMA
     Dosage: 37.5 MG, UNK
     Dates: start: 201205
  2. SUTENT [Suspect]
     Dosage: 25 MG DAILY FOR 7 DAYS ON AND OFF FOR 7
  3. DIGOXIN [Concomitant]
     Dosage: UNK
  4. POTASSIUM CHLORIDE [Concomitant]
     Dosage: UNK
  5. MAGNESIUM-DELAYED [Concomitant]
     Dosage: UNK
  6. LEVOTHYROXINE [Concomitant]
     Dosage: UNK
  7. ZYRTEC [Concomitant]
     Dosage: AS NEEDED
  8. CARVEDILOL [Concomitant]
     Dosage: UNK
  9. DILTIAZEM [Concomitant]
     Dosage: UNK
  10. MILK OF MAGNESIA [Concomitant]
     Dosage: AS NEEDED
  11. VITAMIN B12 [Concomitant]
     Dosage: UNK

REACTIONS (10)
  - Loss of consciousness [Recovered/Resolved]
  - Pericardial effusion [Recovered/Resolved]
  - Disease progression [Unknown]
  - Metastatic renal cell carcinoma [Unknown]
  - Dysgeusia [Unknown]
  - White blood cell count decreased [Unknown]
  - Diarrhoea [Unknown]
  - Decreased appetite [Unknown]
  - Weight decreased [Unknown]
  - Hearing impaired [Unknown]
